FAERS Safety Report 5075810-0 (Version None)
Quarter: 2006Q3

REPORT INFORMATION
  Report Type: 
  Country: None (occurrence: None)
  Receive Date: 20060809
  Receipt Date: 20060720
  Transmission Date: 20061208
  Serious: Yes (Other)
  Sender: FDA-Public Use
  Company Number: JP-JPN-A200602742

PATIENT
  Age: 68 Year
  Sex: Female
  Weight: 59 kg

DRUGS (10)
  1. ZOVIRAX [Suspect]
     Indication: HERPES ZOSTER
     Dosage: 250MG THREE TIMES PER DAY
     Route: 042
     Dates: start: 20060712, end: 20060715
  2. PREDONINE [Concomitant]
     Indication: HERPES ZOSTER
     Dosage: 10MG THREE TIMES PER DAY
     Route: 048
     Dates: start: 20060712, end: 20060714
  3. BASEN [Concomitant]
     Indication: DIABETES MELLITUS
     Dosage: .9MG PER DAY
     Route: 048
  4. EUGLUCON [Concomitant]
     Indication: DIABETES MELLITUS
     Dosage: 1.25MG PER DAY
     Route: 048
  5. LIPITOR [Concomitant]
     Dosage: 10MG PER DAY
     Route: 048
  6. PROPIVERINE [Concomitant]
     Indication: DYSURIA
     Dosage: 10MG PER DAY
     Route: 048
  7. TAKEPRON [Concomitant]
     Indication: GASTRIC ULCER
     Dosage: 15MG PER DAY
     Route: 048
  8. FLOMOX [Concomitant]
     Indication: INFECTION
     Dosage: 300MG PER DAY
     Route: 048
     Dates: start: 20060712, end: 20060715
  9. MUCOSTA [Concomitant]
     Indication: GASTRIC ULCER
     Dosage: 300MG PER DAY
     Route: 048
     Dates: start: 20060712, end: 20060715
  10. HALOPERIDOL [Concomitant]
     Dates: start: 20060715

REACTIONS (2)
  - AGGRESSION [None]
  - DISORIENTATION [None]
